FAERS Safety Report 7561805-1 (Version None)
Quarter: 2011Q2

REPORT INFORMATION
  Report Type: 
  Country: None (occurrence: None)
  Receive Date: 20110621
  Receipt Date: 20110614
  Transmission Date: 20111010
  Serious: Yes (Other)
  Sender: FDA-Public Use
  Company Number: CHPA2011US07990

PATIENT
  Age: 58 Year
  Sex: Male

DRUGS (5)
  1. DRUG THERAPY NOS [Concomitant]
     Indication: PROSTATIC DISORDER
  2. ANTIHYPERTENSIVES [Concomitant]
     Indication: HYPERTENSION
  3. ORAL ANTIDIABETICS [Concomitant]
     Indication: DIABETES MELLITUS
     Dosage: 1 DF, TID
  4. PREVACID 24 HR [Suspect]
     Indication: GASTROOESOPHAGEAL REFLUX DISEASE
     Dosage: 15 MG, QD
     Route: 048
     Dates: end: 20110612
  5. CRESTOR [Concomitant]

REACTIONS (6)
  - INCORRECT DRUG ADMINISTRATION DURATION [None]
  - HEART RATE INCREASED [None]
  - LOSS OF CONSCIOUSNESS [None]
  - DIZZINESS [None]
  - OFF LABEL USE [None]
  - HYPERSENSITIVITY [None]
